FAERS Safety Report 13991003 (Version 1)
Quarter: 2017Q3

REPORT INFORMATION
  Report Type: Report from Study
  Country: None (occurrence: US)
  Receive Date: 20170920
  Receipt Date: 20170920
  Transmission Date: 20171128
  Serious: Yes (Other)
  Sender: FDA-Public Use
  Company Number: US-ABBVIE-17K-163-2101484-00

PATIENT
  Sex: Female

DRUGS (1)
  1. HUMIRA [Suspect]
     Active Substance: ADALIMUMAB
     Indication: RHEUMATOID ARTHRITIS
     Route: 058
     Dates: start: 2015, end: 201708

REACTIONS (7)
  - Gangrene [Recovered/Resolved]
  - Fall [Recovered/Resolved]
  - Skin wound [Recovering/Resolving]
  - Osteoarthritis [Recovered/Resolved]
  - Immunodeficiency [Recovering/Resolving]
  - Rheumatoid arthritis [Recovered/Resolved]
  - Staphylococcal infection [Recovered/Resolved]

NARRATIVE: CASE EVENT DATE: 2016
